FAERS Safety Report 8521135 (Version 2)
Quarter: 2012Q4

REPORT INFORMATION
  Report Type: 
  Country: FR (occurrence: FR)
  Receive Date: 20120419
  Receipt Date: 20120925
  Transmission Date: 20130627
  Serious: Yes (Hospitalization, Other)
  Sender: FDA-Public Use
  Company Number: FR-AMGEN-FRASP2012023110

PATIENT
  Age: 59 Year
  Sex: Female

DRUGS (4)
  1. ENBREL [Suspect]
     Indication: RHEUMATOID ARTHRITIS
     Dosage: 50 mg, weekly
     Route: 058
     Dates: start: 20110805, end: 201109
  2. ENBREL [Suspect]
     Dosage: 50 mg, qwk
     Route: 058
     Dates: start: 20111022, end: 20120412
  3. ARAVA [Concomitant]
     Indication: RHEUMATOID ARTHRITIS
     Dosage: 20 mg, qd
     Dates: start: 201102
  4. CORTANCYL [Concomitant]
     Indication: RHEUMATOID ARTHRITIS
     Dosage: 40 to 50 mg daily
     Dates: start: 201108

REACTIONS (6)
  - Abdominal pain [Unknown]
  - Diverticulitis [Recovered/Resolved]
  - Diarrhoea [Unknown]
  - Pneumonia haemophilus [Recovered/Resolved]
  - Influenza [Unknown]
  - Pyelonephritis acute [Recovered/Resolved]
